FAERS Safety Report 6816236-6 (Version None)
Quarter: 2010Q3

REPORT INFORMATION
  Report Type: 
  Country: None (occurrence: None)
  Receive Date: 20100702
  Receipt Date: 20100702
  Transmission Date: 20110219
  Serious: Yes (Hospitalization)
  Sender: FDA-Public Use
  Company Number: None

PATIENT
  Sex: Male
  Weight: 44.9 kg

DRUGS (3)
  1. CARBOPLATIN [Suspect]
     Dosage: 942 MG
  2. ERBITUX [Suspect]
     Dosage: 0 MG
  3. TAXOL [Suspect]
     Dosage: 264 MG

REACTIONS (8)
  - APHAGIA [None]
  - ASTHENIA [None]
  - FATIGUE [None]
  - FLUID INTAKE REDUCED [None]
  - HYPOTENSION [None]
  - OESOPHAGITIS [None]
  - PAIN [None]
  - PNEUMONIA [None]
